FAERS Safety Report 20721653 (Version 2)
Quarter: 2022Q2

REPORT INFORMATION
  Report Type: Report from Study
  Country: DE (occurrence: None)
  Receive Date: 20220418
  Receipt Date: 20220423
  Transmission Date: 20220720
  Serious: Yes (Hospitalization)
  Sender: FDA-Public Use
  Company Number: DE-ROCHE-3071628

PATIENT
  Age: 73 Year
  Sex: Male
  Weight: 79 kg

DRUGS (14)
  1. MOSUNETUZUMAB [Suspect]
     Active Substance: MOSUNETUZUMAB
     Indication: Non-Hodgkin^s lymphoma unspecified histology indolent
     Dosage: DOSE LAST STUDY DRUG ADMIN PRIOR AE AND SAE IS 30 MG?START AND END DATE OF MOST RECENT DOSE OF STUDY
     Route: 042
     Dates: start: 20220225
  2. LENALIDOMIDE [Suspect]
     Active Substance: LENALIDOMIDE
     Indication: Non-Hodgkin^s lymphoma unspecified histology indolent
     Dosage: DOSE LAST STUDY DRUG ADMIN PRIOR AE AND SAE: 20 MG?START DATE OF MOST RECENT DOSE OF STUDY DRUG PRIO
     Route: 048
     Dates: start: 20220322
  3. TOCILIZUMAB [Suspect]
     Active Substance: TOCILIZUMAB
     Indication: Non-Hodgkin^s lymphoma unspecified histology indolent
     Route: 042
     Dates: start: 20220325
  4. ALLOPURINOL [Concomitant]
     Active Substance: ALLOPURINOL
     Indication: Prophylaxis
     Route: 048
     Dates: start: 20220225
  5. ACETAMINOPHEN [Concomitant]
     Active Substance: ACETAMINOPHEN
     Indication: Prophylaxis
     Route: 048
     Dates: start: 20220225
  6. ACETAMINOPHEN [Concomitant]
     Active Substance: ACETAMINOPHEN
     Indication: Cytokine release syndrome
     Route: 048
     Dates: start: 20220323, end: 20220324
  7. DEXAMETHASONE [Concomitant]
     Active Substance: DEXAMETHASONE
     Indication: Prophylaxis
     Route: 042
     Dates: start: 20220225
  8. CLEMASTINE [Concomitant]
     Active Substance: CLEMASTINE
     Indication: Prophylaxis
     Route: 042
     Dates: start: 20220225
  9. ASPIRIN [Concomitant]
     Active Substance: ASPIRIN
     Route: 048
     Dates: start: 20220322
  10. PIPERACILLIN SODIUM\TAZOBACTAM SODIUM [Concomitant]
     Active Substance: PIPERACILLIN SODIUM\TAZOBACTAM SODIUM
     Indication: Infection
     Route: 042
     Dates: start: 20220324, end: 20220401
  11. CALCIUM CHLORIDE\MAGNESIUM CHLORIDE\POTASSIUM CHLORIDE\SODIUM ACETATE\ [Concomitant]
     Active Substance: CALCIUM CHLORIDE\MAGNESIUM CHLORIDE\POTASSIUM CHLORIDE\SODIUM ACETATE\SODIUM CHLORIDE
     Indication: Cytokine release syndrome
     Route: 042
     Dates: start: 20220324, end: 20220331
  12. CALCIUM CHLORIDE\MAGNESIUM CHLORIDE\POTASSIUM CHLORIDE\SODIUM ACETATE\ [Concomitant]
     Active Substance: CALCIUM CHLORIDE\MAGNESIUM CHLORIDE\POTASSIUM CHLORIDE\SODIUM ACETATE\SODIUM CHLORIDE
     Route: 042
     Dates: start: 20220225
  13. TOCILIZUMAB [Concomitant]
     Active Substance: TOCILIZUMAB
     Indication: Cytokine release syndrome
     Route: 042
     Dates: start: 20220325, end: 20220325
  14. BACLOFEN [Concomitant]
     Active Substance: BACLOFEN
     Indication: Hiccups
     Route: 048
     Dates: start: 20220326

REACTIONS (1)
  - General physical health deterioration [Recovered/Resolved]

NARRATIVE: CASE EVENT DATE: 20220405
